FAERS Safety Report 12853779 (Version 1)
Quarter: 2016Q4

REPORT INFORMATION
  Report Type: Spontaneous
  Country: US (occurrence: US)
  Receive Date: 20161017
  Receipt Date: 20161017
  Transmission Date: 20170207
  Serious: Yes (Disabling)
  Sender: FDA-Public Use
  Company Number: None

PATIENT
  Age: 57 Year
  Sex: Male
  Weight: 90 kg

DRUGS (13)
  1. DR. DANIELLE^S RALA [Concomitant]
  2. TRAMADOL. [Concomitant]
     Active Substance: TRAMADOL
  3. DOCTOR^S BEST ACETYL-L-CARNITINE WITH BIOSINT CARNITINES [Concomitant]
  4. BEST NATURALS BIOTIN [Concomitant]
  5. DOCTOR^S BEST VITAMIN D3 [Concomitant]
  6. DOCTOR^S BEST HIGH ABSORPTION COQ10 W/ BIOPERINE [Concomitant]
  7. MANITOBA HARVEST, CERTIFIED ORGANIC HEMP OIL [Concomitant]
  8. LEVOFLOXACIN 500 MG JOHNSON AND JOHNSON [Suspect]
     Active Substance: LEVOFLOXACIN
     Indication: SINUSITIS
     Dosage: ?          QUANTITY:7 CAPSULE(S);?
     Route: 048
     Dates: start: 20150529, end: 20150604
  9. BACLOFEN. [Concomitant]
     Active Substance: BACLOFEN
  10. DOCTOR^S BEST HIGH ABSORPTION MAGNESIUM [Concomitant]
  11. BEST NATURALS, BREWERS YEAST 7-1/2 GRAINS WITH VITAMIN B1, VITAMIN B2 AND NIACIN [Concomitant]
  12. DOCTOR^S BEST FULLY ACTIVE B12 [Concomitant]
  13. VEGETARIAN CAPSULES [Concomitant]

REACTIONS (4)
  - Tendon injury [None]
  - Pain [None]
  - Headache [None]
  - Tinnitus [None]

NARRATIVE: CASE EVENT DATE: 20150530
